FAERS Safety Report 6120661-9 (Version None)
Quarter: 2009Q1

REPORT INFORMATION
  Report Type: 
  Country: None (occurrence: None)
  Receive Date: 20090312
  Receipt Date: 20090312
  Transmission Date: 20090719
  Serious: Yes (Other)
  Sender: FDA-Public Use
  Company Number: None

PATIENT
  Age: 25 Year
  Sex: Female
  Weight: 57.1532 kg

DRUGS (1)
  1. CYMBALTA [Suspect]
     Indication: DEPRESSION
     Dosage: 60MG 1 DAILY PO
     Route: 048
     Dates: start: 20070520, end: 20090307

REACTIONS (10)
  - ABNORMAL DREAMS [None]
  - DIZZINESS [None]
  - EMOTIONAL DISTRESS [None]
  - INSOMNIA [None]
  - IRRITABILITY [None]
  - MOOD SWINGS [None]
  - NAUSEA [None]
  - PERFORMANCE STATUS DECREASED [None]
  - VERTIGO [None]
  - WITHDRAWAL SYNDROME [None]
